FAERS Safety Report 7938740-X (Version None)
Quarter: 2011Q4

REPORT INFORMATION
  Report Type: 
  Country: None (occurrence: None)
  Receive Date: 20111124
  Receipt Date: 20111117
  Transmission Date: 20120403
  Serious: No
  Sender: FDA-Public Use
  Company Number: US-BIOGENIDEC-2011BI028420

PATIENT
  Sex: Female

DRUGS (4)
  1. COPAXONE [Concomitant]
     Indication: MULTIPLE SCLEROSIS
  2. AVONEX [Concomitant]
     Indication: MULTIPLE SCLEROSIS
     Route: 030
  3. TYSABRI [Suspect]
     Route: 042
     Dates: start: 20070123, end: 20100524
  4. TYSABRI [Suspect]
     Indication: MULTIPLE SCLEROSIS
     Route: 042
     Dates: start: 20101110

REACTIONS (16)
  - DEPRESSED MOOD [None]
  - LACERATION [None]
  - TOOTH ABSCESS [None]
  - FALL [None]
  - BONE DISORDER [None]
  - SPINAL COLUMN INJURY [None]
  - DEVICE EXPULSION [None]
  - CARDIAC DISORDER [None]
  - PARAESTHESIA [None]
  - ARTHRITIS [None]
  - RIB FRACTURE [None]
  - MUSCLE SPASMS [None]
  - ROAD TRAFFIC ACCIDENT [None]
  - ARTHRALGIA [None]
  - CONCUSSION [None]
  - CONTUSION [None]
